FAERS Safety Report 5615543-2 (Version None)
Quarter: 2008Q1

REPORT INFORMATION
  Report Type: 
  Country: None (occurrence: None)
  Receive Date: 20080204
  Receipt Date: 20080204
  Transmission Date: 20080703
  Serious: Yes (Hospitalization)
  Sender: FDA-Public Use
  Company Number: None

PATIENT
  Age: 63 Year
  Sex: Male

DRUGS (2)
  1. VENLAFAXINE HCL [Suspect]
     Dosage: 225MG EVERY DAY PO
     Route: 048
     Dates: start: 20060608
  2. DEXTROMETHORPHAN/GUAIFENESIN [Suspect]
     Dosage: 10MG PO
     Route: 048
     Dates: start: 20071219, end: 20071227

REACTIONS (4)
  - DRUG INTERACTION [None]
  - HALLUCINATIONS, MIXED [None]
  - INAPPROPRIATE ANTIDIURETIC HORMONE SECRETION [None]
  - SEROTONIN SYNDROME [None]
